FAERS Safety Report 5870850-3 (Version None)
Quarter: 2008Q3

REPORT INFORMATION
  Report Type: 
  Country: None (occurrence: None)
  Receive Date: 20080904
  Receipt Date: 20080829
  Transmission Date: 20090109
  Serious: Yes (Disabling)
  Sender: FDA-Public Use
  Company Number: AU-ASTRAZENECA-2008AP06398

PATIENT
  Sex: Female

DRUGS (1)
  1. ARIMIDEX [Suspect]
     Indication: BREAST CANCER RECURRENT
     Route: 048
     Dates: start: 20070301, end: 20080701

REACTIONS (1)
  - NEOPLASM MALIGNANT [None]
